FAERS Safety Report 9754276 (Version 2)
Quarter: 2013Q4

REPORT INFORMATION
  Report Type: Spontaneous
  Country: US (occurrence: US)
  Receive Date: 20131213
  Receipt Date: 20131216
  Transmission Date: 20140711
  Serious: Yes (Other)
  Sender: FDA-Public Use
  Company Number: US-TEVA-408961USA

PATIENT
  Age: 37 Year
  Sex: Female
  Weight: 82.63 kg

DRUGS (2)
  1. PARAGARD 380A [Suspect]
     Indication: CONTRACEPTION
     Route: 015
     Dates: start: 20120405, end: 20130416
  2. EXFORGE [Concomitant]
     Indication: HYPERTENSION

REACTIONS (1)
  - Device dislocation [Recovered/Resolved]
